FAERS Safety Report 17502252 (Version 1)
Quarter: 2020Q1

REPORT INFORMATION
  Report Type: Spontaneous
  Country: US (occurrence: US)
  Receive Date: 20200305
  Receipt Date: 20200305
  Transmission Date: 20200409
  Serious: Yes (Hospitalization)
  Sender: FDA-Public Use
  Company Number: US-ASTRAZENECA-2020SE29431

PATIENT
  Age: 83 Year
  Sex: Male

DRUGS (1)
  1. BRILINTA [Suspect]
     Active Substance: TICAGRELOR
     Indication: CATHETER PLACEMENT
     Route: 048
     Dates: start: 20200224, end: 20200225

REACTIONS (1)
  - Dyspnoea [Unknown]
